FAERS Safety Report 8794204 (Version 2)
Quarter: 2013Q4

REPORT INFORMATION
  Report Type: Report from Study
  Country: JP (occurrence: JP)
  Receive Date: 20120918
  Receipt Date: 20131101
  Transmission Date: 20140711
  Serious: Yes (Hospitalization)
  Sender: FDA-Public Use
  Company Number: JP-009507513-2012SP036323

PATIENT
  Age: 66 Year
  Sex: Male
  Weight: 60 kg

DRUGS (12)
  1. PEGINTERFERON ALFA-2B [Suspect]
     Indication: HEPATITIS C
     Dosage: 1.5 ?G/KG, QW
     Route: 058
     Dates: start: 20120313, end: 20120821
  2. REBETOL [Suspect]
     Indication: HEPATITIS C
     Dosage: 800 MG, QD
     Route: 048
     Dates: start: 20120313, end: 20120611
  3. REBETOL [Suspect]
     Dosage: 600 MG, QD
     Route: 048
     Dates: start: 20120612, end: 20120827
  4. TELAVIC [Suspect]
     Indication: HEPATITIS C
     Dosage: 2250 MG, QD
     Route: 048
     Dates: start: 20120313, end: 20120531
  5. TELAVIC [Suspect]
     Dosage: 1500 MG, QD
     Route: 048
     Dates: start: 20120601, end: 20120604
  6. CALONAL [Concomitant]
     Dosage: DOSE 200
     Route: 048
     Dates: start: 20120313
  7. FULMETA [Concomitant]
     Indication: PRURITUS
     Dosage: STRENGTH 5G
     Route: 061
     Dates: start: 20120318
  8. NAUZELIN [Concomitant]
     Dosage: 30 MG, QD
     Route: 065
     Dates: start: 20120403
  9. FEBURIC [Concomitant]
     Dosage: 10 MG, QD
     Route: 065
     Dates: start: 20120403
  10. FEBURIC [Concomitant]
     Dosage: 20 MG, QD
     Route: 065
     Dates: start: 20120410, end: 20120410
  11. ESPO [Concomitant]
     Dosage: DOSE 1200 UNITS
     Route: 058
     Dates: start: 20120410
  12. ESPO [Concomitant]
     Dosage: DOSE: 2400 UNITS
     Route: 058
     Dates: start: 20120417

REACTIONS (1)
  - Decreased appetite [Recovering/Resolving]
